FAERS Safety Report 5226852-3 (Version None)
Quarter: 2007Q1

REPORT INFORMATION
  Report Type: 
  Country: None (occurrence: None)
  Receive Date: 20070130
  Receipt Date: 20070123
  Transmission Date: 20070707
  Serious: Yes (Hospitalization)
  Sender: FDA-Public Use
  Company Number: DYR2007002

PATIENT
  Sex: Female

DRUGS (1)
  1. DYRENIUM [Suspect]
     Indication: HYPERTENSION
     Dosage: 100 MG, 2X/DAY, ORALLY
     Route: 048
     Dates: start: 19890101, end: 19970101

REACTIONS (2)
  - KIDNEY INFECTION [None]
  - NEPHROLITHIASIS [None]
